FAERS Safety Report 9485687 (Version 1)
Quarter: 2013Q3

REPORT INFORMATION
  Report Type: Spontaneous
  Country: US (occurrence: US)
  Receive Date: 20130829
  Receipt Date: 20130829
  Transmission Date: 20140515
  Serious: Yes (Other)
  Sender: FDA-Public Use
  Company Number: US-JNJFOC-20130809441

PATIENT
  Sex: Male

DRUGS (1)
  1. NICORETTE [Suspect]
     Indication: TOBACCO ABUSE
     Dosage: OVER PERIOD OF 13 YEAR
     Route: 065

REACTIONS (3)
  - Drug administration error [Unknown]
  - Intentional drug misuse [Unknown]
  - Nicotine dependence [Unknown]
